FAERS Safety Report 7569397-8 (Version None)
Quarter: 2011Q2

REPORT INFORMATION
  Report Type: 
  Country: None (occurrence: None)
  Receive Date: 20110623
  Receipt Date: 20110621
  Transmission Date: 20111010
  Serious: Yes (Other)
  Sender: FDA-Public Use
  Company Number: BR-ABBOTT-11P-020-0731201-00

PATIENT
  Sex: Female
  Weight: 57 kg

DRUGS (6)
  1. METHOTREXATE [Concomitant]
     Indication: RHEUMATOID ARTHRITIS
     Route: 048
     Dates: start: 19910101, end: 20110401
  2. CHLOROQUINE [Concomitant]
     Indication: RHEUMATOID ARTHRITIS
     Route: 048
     Dates: start: 20010101, end: 20110401
  3. HUMIRA [Suspect]
     Indication: RHEUMATOID ARTHRITIS
     Route: 058
     Dates: start: 20050601, end: 20110301
  4. UNKNOWN NONSTEROIDAL ANTI-INFLAMMATORY [Concomitant]
     Indication: PRODUCT USED FOR UNKNOWN INDICATION
  5. UNKNOWN CORTICOID [Concomitant]
     Indication: PRODUCT USED FOR UNKNOWN INDICATION
  6. LEFLUNOMIDE [Concomitant]
     Indication: PRODUCT USED FOR UNKNOWN INDICATION

REACTIONS (6)
  - PAIN [None]
  - WEIGHT DECREASED [None]
  - COLON CANCER STAGE I [None]
  - INTESTINAL MASS [None]
  - RHEUMATOID ARTHRITIS [None]
  - FATIGUE [None]
